FAERS Safety Report 4524926-3 (Version None)
Quarter: 2004Q4

REPORT INFORMATION
  Report Type: 
  Country: None (occurrence: None)
  Receive Date: 20041210
  Receipt Date: 20041201
  Transmission Date: 20050328
  Serious: Yes (Death, Hospitalization)
  Sender: FDA-Public Use
  Company Number: 2004100581

PATIENT
  Age: 92 Year
  Sex: Male

DRUGS (1)
  1. LISTERINE (MENTHOL, METHYL SALICYLATE, EUCALYPTOL, THYMOL) [Suspect]
     Dosage: ORAL TOPICAL
     Route: 048

REACTIONS (3)
  - GANGRENE [None]
  - LEG AMPUTATION [None]
  - POOR PERIPHERAL CIRCULATION [None]
